FAERS Safety Report 9510299 (Version 1)
Quarter: 2013Q3

REPORT INFORMATION
  Report Type: Spontaneous
  Country: US (occurrence: US)
  Receive Date: 20130909
  Receipt Date: 20130909
  Transmission Date: 20140515
  Serious: Yes (Other)
  Sender: FDA-Public Use
  Company Number: US-BRISTOL-MYERS SQUIBB COMPANY-18736876

PATIENT
  Age: 16 Year
  Sex: Male

DRUGS (4)
  1. ABILIFY [Suspect]
     Dosage: DOSE INCREASED TO 15MG ON 27MAR13
  2. TRAZODONE HCL [Suspect]
  3. VYVANSE [Suspect]
  4. ZOLOFT [Suspect]

REACTIONS (1)
  - Anger [Unknown]
